FAERS Safety Report 4685201-X (Version None)
Quarter: 2005Q2

REPORT INFORMATION
  Report Type: 
  Country: None (occurrence: None)
  Receive Date: 20050608
  Receipt Date: 20050530
  Transmission Date: 20051028
  Serious: Yes (Hospitalization)
  Sender: FDA-Public Use
  Company Number: PHBS2005JP07705

PATIENT
  Age: 51 Year
  Sex: Female

DRUGS (3)
  1. AREDIA [Suspect]
     Indication: METASTASES TO BONE
     Dosage: 30 MG/DAY
     Route: 042
     Dates: start: 20050507, end: 20050507
  2. TAXOL [Concomitant]
     Dosage: 100 MG/D
     Route: 042
     Dates: start: 20050416, end: 20050430
  3. FOSAMAX [Concomitant]
     Dosage: 25 MG/D
     Route: 048
     Dates: start: 20050425, end: 20050502

REACTIONS (5)
  - COGNITIVE DISORDER [None]
  - CONVULSION [None]
  - FOAMING AT MOUTH [None]
  - INTUBATION [None]
  - LOSS OF CONSCIOUSNESS [None]
